FAERS Safety Report 19603567 (Version 1)
Quarter: 2021Q3

REPORT INFORMATION
  Report Type: Spontaneous
  Country: US (occurrence: US)
  Receive Date: 20210723
  Receipt Date: 20210723
  Transmission Date: 20211014
  Serious: Yes (Hospitalization)
  Sender: FDA-Public Use
  Company Number: US-MYLANLABS-2021M1044683

PATIENT
  Sex: Female

DRUGS (15)
  1. AZITHROMYCIN ANHYDROUS. [Suspect]
     Active Substance: AZITHROMYCIN ANHYDROUS
     Indication: ANTIBIOTIC THERAPY
     Dosage: UNK
     Route: 065
  2. INSULIN [Concomitant]
     Active Substance: INSULIN NOS
     Indication: HYPERKALAEMIA
     Dosage: UNK
     Route: 065
  3. RIFAMPICIN [Suspect]
     Active Substance: RIFAMPIN
     Indication: STAPHYLOCOCCAL BACTERAEMIA
     Dosage: 10 MILLIGRAM/KILOGRAM, QID (STARTED ON DAY 14 OF LIFE)
     Route: 065
  4. FUROSEMIDE. [Concomitant]
     Active Substance: FUROSEMIDE
     Indication: HYPERKALAEMIA
     Dosage: UNK
     Route: 065
  5. NAFCILLIN [Suspect]
     Active Substance: NAFCILLIN SODIUM
     Indication: STAPHYLOCOCCAL BACTERAEMIA
     Dosage: 50 MILLIGRAM/KILOGRAM, QID  (DIVIDED EVERY 12 HOURS (TWO ADMINISTRATION; STARTED ON DAY 12 OF LIFE)
     Route: 065
  6. NAFCILLIN [Suspect]
     Active Substance: NAFCILLIN SODIUM
     Dosage: 99 MILLIGRAM/KILOGRAM, Q8H (STARTED ON DAY 13 OF LIFE)
     Route: 065
  7. CEPHALEXIN                         /00145501/ [Suspect]
     Active Substance: CEPHALEXIN
     Indication: ANTIBIOTIC THERAPY
     Dosage: UNK
     Route: 065
  8. ERTAPENEM. [Concomitant]
     Active Substance: ERTAPENEM SODIUM
     Indication: STAPHYLOCOCCAL BACTERAEMIA
     Dosage: 15 MILLIGRAM/KILOGRAM, QID (15MG/KG/DOSE)
     Route: 065
  9. CALCIUM GLUCONATE. [Concomitant]
     Active Substance: CALCIUM GLUCONATE
     Indication: HYPERKALAEMIA
     Dosage: UNK
     Route: 065
  10. NAFCILLIN [Suspect]
     Active Substance: NAFCILLIN SODIUM
     Dosage: 200 MILLIGRAM/KILOGRAM, Q8H (STARTED ON DAY 15 OF LIFE)
     Route: 065
  11. CEFAZOLIN [Concomitant]
     Active Substance: CEFAZOLIN
     Indication: STAPHYLOCOCCAL BACTERAEMIA
     Dosage: 50 MILLIGRAM/KILOGRAM, Q8H (50MG/KG/DOSE)
     Route: 065
  12. DOPAMINE [Concomitant]
     Active Substance: DOPAMINE HYDROCHLORIDE
     Indication: DRUG THERAPY
     Dosage: UNK
     Route: 065
  13. SODIUM BICARBONATE. [Concomitant]
     Active Substance: SODIUM BICARBONATE
     Indication: HYPERKALAEMIA
     Dosage: UNK
     Route: 065
  14. DEXTROSE. [Concomitant]
     Active Substance: DEXTROSE
     Indication: HYPERKALAEMIA
     Dosage: UNK
     Route: 065
  15. HYDROCORTISONE. [Concomitant]
     Active Substance: HYDROCORTISONE
     Indication: ADRENOCORTICAL INSUFFICIENCY ACUTE
     Dosage: 1 MILLIGRAM/KILOGRAM, Q8H
     Route: 065

REACTIONS (2)
  - Foetal exposure during pregnancy [Unknown]
  - Treatment failure [Unknown]
